FAERS Safety Report 20977522 (Version 1)
Quarter: 2022Q2

REPORT INFORMATION
  Report Type: Spontaneous
  Country: KR (occurrence: KR)
  Receive Date: 20220618
  Receipt Date: 20220618
  Transmission Date: 20220721
  Serious: Yes (Hospitalization, Other)
  Sender: FDA-Public Use
  Company Number: KR-CELLTRION INC.-2022KR007959

PATIENT

DRUGS (2)
  1. INFLIXIMAB [Suspect]
     Active Substance: INFLIXIMAB
     Indication: Crohn^s disease
     Dosage: 120 MG, SC
     Route: 058
     Dates: start: 20220525, end: 20220527
  2. PENTASA [Concomitant]
     Active Substance: MESALAMINE
     Dosage: 2 G, BID, START DATE 4 MONTHS AGO, END DATE JUN 7TH, TAKE ONLY

REACTIONS (2)
  - Peritonitis [Not Recovered/Not Resolved]
  - Product leakage [Recovered/Resolved]

NARRATIVE: CASE EVENT DATE: 20220525
